FAERS Safety Report 4724798-8 (Version None)
Quarter: 2005Q3

REPORT INFORMATION
  Report Type: 
  Country: None (occurrence: None)
  Receive Date: 20050726
  Receipt Date: 20050711
  Transmission Date: 20060218
  Serious: Yes (Other)
  Sender: FDA-Public Use
  Company Number: 200515896US

PATIENT
  Sex: Female

DRUGS (3)
  1. LANTUS [Suspect]
     Indication: DIABETES MELLITUS INSULIN-DEPENDENT
     Dosage: DOSE UNIT: UNITS
     Route: 051
     Dates: start: 20050707, end: 20050707
  2. APIDRA [Suspect]
     Indication: DIABETES MELLITUS INSULIN-DEPENDENT
     Dosage: DOSE UNIT: UNITS
     Route: 051
  3. ZOCOR [Concomitant]
     Dosage: DOSE: UNKNOWN

REACTIONS (9)
  - DEHYDRATION [None]
  - DEVICE FAILURE [None]
  - DIABETIC KETOACIDOSIS [None]
  - FATIGUE [None]
  - HYPERGLYCAEMIA [None]
  - MALAISE [None]
  - MEDICATION ERROR [None]
  - THIRST [None]
  - WRONG DRUG ADMINISTERED [None]
